FAERS Safety Report 21114471 (Version 1)
Quarter: 2022Q3

REPORT INFORMATION
  Report Type: Other
  Country: US (occurrence: None)
  Receive Date: 20220721
  Receipt Date: 20220721
  Transmission Date: 20221027
  Serious: Yes (Disabling, Other)
  Sender: FDA-Public Use
  Company Number: US-Invatech-000258

PATIENT
  Age: 8 Year
  Sex: Male

DRUGS (5)
  1. AMANTADINE [Suspect]
     Active Substance: AMANTADINE
     Indication: Tardive dyskinesia
     Dosage: 100 MG ONCE DAILY
  2. CLONIDINE [Concomitant]
     Active Substance: CLONIDINE
     Indication: Product used for unknown indication
     Dosage: 0.1 MG TWICE DAILY
  3. RISPERIDONE [Concomitant]
     Active Substance: RISPERIDONE
     Indication: Product used for unknown indication
     Dosage: 0.5 MG 5 TIMES DAILY
  4. LISDEXAMFETAMINE [Concomitant]
     Active Substance: LISDEXAMFETAMINE
     Indication: Product used for unknown indication
     Dosage: 60 MG DAILY
  5. VALPROIC ACID [Concomitant]
     Active Substance: VALPROIC ACID
     Indication: Product used for unknown indication
     Dosage: 500 MG DAILY

REACTIONS (8)
  - Visual impairment [Recovering/Resolving]
  - Blindness [Recovering/Resolving]
  - Saccadic eye movement [Unknown]
  - Intellectual disability [Recovering/Resolving]
  - Corneal oedema [Recovered/Resolved]
  - Toxicity to various agents [Unknown]
  - Condition aggravated [Recovering/Resolving]
  - Off label use [Unknown]
